FAERS Safety Report 15207288 (Version 1)
Quarter: 2018Q3

REPORT INFORMATION
  Report Type: Spontaneous
  Country: US (occurrence: US)
  Receive Date: 20180727
  Receipt Date: 20180727
  Transmission Date: 20181010
  Serious: Yes (Other)
  Sender: FDA-Public Use
  Company Number: US-BAYER-2018-137163

PATIENT
  Sex: Female

DRUGS (2)
  1. MIRENA [Suspect]
     Active Substance: LEVONORGESTREL
     Indication: MENORRHAGIA
     Dosage: 20 MCG/24HR, CONT
     Route: 015
     Dates: start: 2016, end: 2016
  2. MIRENA [Suspect]
     Active Substance: LEVONORGESTREL
     Indication: CONTRACEPTION
     Dosage: 20 MCG/24HR, CONT
     Route: 015
     Dates: start: 2016, end: 2016

REACTIONS (5)
  - Medical device site pain [Recovered/Resolved]
  - Dyspareunia [Recovered/Resolved]
  - Uterine cervical pain [Recovered/Resolved]
  - Device physical property issue [Recovered/Resolved]
  - Device dislocation [None]

NARRATIVE: CASE EVENT DATE: 2016
